FAERS Safety Report 13013606 (Version 2)
Quarter: 2017Q2

REPORT INFORMATION
  Report Type: Spontaneous
  Country: CH (occurrence: CH)
  Receive Date: 20161209
  Receipt Date: 20170621
  Transmission Date: 20170830
  Serious: Yes (Hospitalization)
  Sender: FDA-Public Use
  Company Number: CH-PFIZER INC-2016572904

PATIENT
  Age: 84 Year
  Sex: Male
  Weight: 77 kg

DRUGS (12)
  1. ASPIRIN CARDIO [Concomitant]
     Active Substance: ASPIRIN
     Route: 048
  2. VENLAFAXIN ER [Concomitant]
     Dosage: UNK
     Route: 048
  3. PANTOZOL [Concomitant]
     Active Substance: PANTOPRAZOLE SODIUM
     Route: 048
  4. TENORMIN [Suspect]
     Active Substance: ATENOLOL
     Route: 048
     Dates: end: 20160928
  5. VENLAFAXIN ER [Concomitant]
     Route: 048
  6. REMERON [Concomitant]
     Active Substance: MIRTAZAPINE
     Route: 048
  7. FLURAZEPAM [Concomitant]
     Active Substance: FLURAZEPAM\FLURAZEPAM HYDROCHLORIDE
     Route: 048
  8. COVERSUM COMBI [Concomitant]
     Active Substance: INDAPAMIDE
     Dosage: 5/1.25 MG; 1 DF DAILY
     Route: 048
  9. TEMESTA /00273201/ [Concomitant]
     Active Substance: LORAZEPAM
     Route: 048
  10. PLAVIX [Concomitant]
     Active Substance: CLOPIDOGREL BISULFATE
     Route: 048
  11. ZYPREXA [Concomitant]
     Active Substance: OLANZAPINE
     Route: 048
  12. TEMESTA /00273201/ [Concomitant]
     Active Substance: LORAZEPAM
     Route: 048

REACTIONS (3)
  - Electrocardiogram QT prolonged [Recovered/Resolved]
  - Renal failure [Unknown]
  - Bradycardia [Recovered/Resolved]

NARRATIVE: CASE EVENT DATE: 20160928
